FAERS Safety Report 9379492 (Version 1)
Quarter: 2013Q2

REPORT INFORMATION
  Report Type: Spontaneous
  Country: US (occurrence: None)
  Receive Date: 20130627
  Receipt Date: 20130627
  Transmission Date: 20140414
  Serious: Yes (Death)
  Sender: FDA-Public Use
  Company Number: MC201300343

PATIENT
  Age: 60 Year
  Sex: Male

DRUGS (3)
  1. ANGIOMAX, ANGIOX (BIVALIRUDIN) INJECTION [Suspect]
     Indication: PERCUTANEOUS CORONARY INTERVENTION
     Dosage: 14 ML, BOLUS
     Route: 042
     Dates: start: 20130605, end: 20130605
  2. LIDOCAINE (LIDOCAINE HYDROCHLORIDE) [Concomitant]
  3. OMNIPAQUE (IOHEXOL) [Concomitant]

REACTIONS (3)
  - Cardio-respiratory arrest [None]
  - Blood pressure increased [None]
  - Heart rate increased [None]
